FAERS Safety Report 23050005 (Version 3)
Quarter: 2024Q1

REPORT INFORMATION
  Report Type: Report from Study
  Country: CA (occurrence: CA)
  Receive Date: 20231010
  Receipt Date: 20240327
  Transmission Date: 20240410
  Serious: Yes (Hospitalization, Other)
  Sender: FDA-Public Use
  Company Number: CA-SANDOZ-SDZ2023CA008792

PATIENT
  Age: 73 Year
  Sex: Female

DRUGS (2)
  1. HYRIMOZ [Suspect]
     Active Substance: ADALIMUMAB-ADAZ
     Dosage: UNK,40 MG / 0.8 ML (PEN)
     Route: 065
     Dates: start: 20220513
  2. HYRIMOZ [Suspect]
     Active Substance: ADALIMUMAB-ADAZ
     Indication: Crohn^s disease
     Dosage: 40 MG
     Route: 058
     Dates: start: 20220513

REACTIONS (13)
  - Fall [Unknown]
  - Product dose omission issue [Unknown]
  - Product availability issue [Unknown]
  - Asthenia [Unknown]
  - Dehydration [Unknown]
  - Blood calcium abnormal [Unknown]
  - General physical health deterioration [Unknown]
  - Diarrhoea [Unknown]
  - Abdominal mass [Unknown]
  - Hip fracture [Not Recovered/Not Resolved]
  - Pain [Unknown]
  - Abdominal pain [Unknown]
  - Therapeutic product effect incomplete [Unknown]

NARRATIVE: CASE EVENT DATE: 20230601
